FAERS Safety Report 14604093 (Version 5)
Quarter: 2022Q1

REPORT INFORMATION
  Report Type: Spontaneous
  Country: IT (occurrence: IT)
  Receive Date: 20180306
  Receipt Date: 20220208
  Transmission Date: 20220423
  Serious: Yes (Life-Threatening, Hospitalization, Other)
  Sender: FDA-Public Use
  Company Number: None

PATIENT
  Age: 13 Year
  Sex: Male
  Weight: 44 kg

DRUGS (52)
  1. ASPARAGINASE [Suspect]
     Active Substance: ASPARAGINASE
     Indication: Acute lymphocytic leukaemia
     Dosage: 29400 IU, CYCLIC
     Route: 042
     Dates: start: 20170126, end: 20170130
  2. ASPARAGINASE [Suspect]
     Active Substance: ASPARAGINASE
     Dosage: 29400 IU, CYCLIC
     Route: 065
     Dates: start: 20170126, end: 20170202
  3. ERWINASE [Suspect]
     Active Substance: ASPARAGINASE ERWINIA CHRYSANTHEMI
     Indication: Product used for unknown indication
     Dosage: 30000 UL, QD (EV ROUTE)
     Route: 050
     Dates: start: 20161215, end: 20161227
  4. ERWINASE [Suspect]
     Active Substance: ASPARAGINASE ERWINIA CHRYSANTHEMI
     Dosage: UNK
     Route: 065
  5. GLIVEC [Suspect]
     Active Substance: IMATINIB MESYLATE
     Indication: Acute lymphocytic leukaemia
     Dosage: 300 OT, UNK
     Route: 048
     Dates: start: 20160721
  6. GLIVEC [Suspect]
     Active Substance: IMATINIB MESYLATE
     Indication: Philadelphia chromosome positive
     Dosage: 500 MG ALTERNATED WITH 400 MG DAILY (CYCLIC),QD
     Route: 048
     Dates: start: 20170121
  7. GLIVEC [Suspect]
     Active Substance: IMATINIB MESYLATE
     Dosage: 441 MG, QD
     Route: 048
     Dates: start: 20170102
  8. GLIVEC [Suspect]
     Active Substance: IMATINIB MESYLATE
     Dosage: UNK
     Route: 048
     Dates: start: 20161219
  9. GLIVEC [Suspect]
     Active Substance: IMATINIB MESYLATE
     Dosage: 400 MG, QD
     Route: 048
  10. GLIVEC [Suspect]
     Active Substance: IMATINIB MESYLATE
     Dosage: 500 MG, QD
     Route: 048
     Dates: start: 20170102, end: 20170223
  11. GLIVEC [Suspect]
     Active Substance: IMATINIB MESYLATE
     Dosage: 440 MG
     Route: 048
  12. VINCRISTINE [Suspect]
     Active Substance: VINCRISTINE
     Indication: Acute lymphocytic leukaemia
     Dosage: 2 MG, CYCLIC
     Route: 042
     Dates: start: 20170102, end: 20170223
  13. VINCRISTINE [Suspect]
     Active Substance: VINCRISTINE
     Dosage: 2 MG, QD
     Route: 050
     Dates: start: 20161016, end: 20161016
  14. VINCRISTINE [Suspect]
     Active Substance: VINCRISTINE
     Dosage: 2 MG, QD (EV ROUTE)
     Route: 050
     Dates: start: 20161011, end: 20161011
  15. VINCRISTINE [Suspect]
     Active Substance: VINCRISTINE
     Dosage: 2 MG, CYCLIC
     Route: 042
     Dates: start: 20170123, end: 20170220
  16. VINCRISTINE [Suspect]
     Active Substance: VINCRISTINE
     Dosage: 2 MG, (EV ROUTE)
     Route: 050
     Dates: start: 20170619, end: 20170619
  17. VINCRISTINE [Suspect]
     Active Substance: VINCRISTINE
     Dosage: 2 MG
     Route: 042
     Dates: start: 20170220, end: 20170220
  18. DOXORUBICIN [Suspect]
     Active Substance: DOXORUBICIN
     Indication: Acute lymphocytic leukaemia
     Dosage: 44.1 MG, (CYCLIC)
     Route: 042
     Dates: end: 20170220
  19. DOXORUBICIN [Suspect]
     Active Substance: DOXORUBICIN
     Dosage: 44.1 MG, (CYCLIC)
     Route: 042
     Dates: start: 20170123, end: 20170220
  20. DOXORUBICIN [Suspect]
     Active Substance: DOXORUBICIN
     Dosage: 34.5 MG, (EV ROUTE)
     Dates: start: 20170619, end: 20170619
  21. DOXORUBICIN [Suspect]
     Active Substance: DOXORUBICIN
     Indication: Acute lymphocytic leukaemia
     Dosage: 44.1 MG, QD
     Route: 042
     Dates: start: 20170220, end: 20170220
  22. POTASSIUM CHLORIDE [Concomitant]
     Active Substance: POTASSIUM CHLORIDE
     Indication: Product used for unknown indication
     Dosage: 4 DF, QD
     Route: 065
  23. POTASSIUM CHLORIDE [Concomitant]
     Active Substance: POTASSIUM CHLORIDE
     Dosage: UNK
     Route: 042
  24. CEFTAZIDIME [Concomitant]
     Active Substance: CEFTAZIDIME
     Indication: Product used for unknown indication
     Dosage: 1800 MG, TID (EV ROUTE)
  25. CEFTAZIDIME [Concomitant]
     Active Substance: CEFTAZIDIME
     Dosage: UNK
     Route: 065
  26. CEFTAZIDIME [Concomitant]
     Active Substance: CEFTAZIDIME
     Dosage: 1800 MG, TID (EV ROUTE)
     Dates: start: 20170702, end: 20170708
  27. DEXAMETHASONE [Concomitant]
     Active Substance: DEXAMETHASONE
     Indication: Product used for unknown indication
     Dosage: 30 MG, QD (EV ROUTE)
     Route: 065
     Dates: start: 20161011, end: 20161015
  28. DEXAMETHASONE [Concomitant]
     Active Substance: DEXAMETHASONE
     Dosage: 13.8 MG
     Route: 048
     Dates: start: 20170605, end: 20170629
  29. DEXAMETHASONE [Concomitant]
     Active Substance: DEXAMETHASONE
     Dosage: UNK
     Route: 065
  30. ENALAPRIL MALEATE [Concomitant]
     Active Substance: ENALAPRIL MALEATE
     Indication: Product used for unknown indication
     Dosage: UNK
     Route: 065
     Dates: start: 20170205
  31. ENALAPRIL MALEATE [Concomitant]
     Active Substance: ENALAPRIL MALEATE
     Dosage: 10 MG, QD
     Route: 065
  32. BACTRIM [Concomitant]
     Active Substance: SULFAMETHOXAZOLE\TRIMETHOPRIM
     Indication: Product used for unknown indication
     Dosage: 2 DF, QD
     Route: 065
  33. OMEPRAZOLE [Concomitant]
     Active Substance: OMEPRAZOLE
     Indication: Product used for unknown indication
     Dosage: 40 MG, UNK
     Route: 042
  34. METHOTREXATE [Concomitant]
     Active Substance: METHOTREXATE
     Indication: Product used for unknown indication
     Dosage: UNK
     Dates: start: 20161108
  35. METHOTREXATE [Concomitant]
     Active Substance: METHOTREXATE
     Dosage: 7700 MG QD
     Dates: start: 20161011, end: 20161011
  36. METHOTREXATE [Concomitant]
     Active Substance: METHOTREXATE
     Dosage: 12 MG QD
     Route: 037
     Dates: start: 20161011, end: 20161011
  37. DIFLUCAN [Concomitant]
     Active Substance: FLUCONAZOLE
     Indication: Product used for unknown indication
     Dosage: 400 MG, UNK
     Route: 042
  38. ACYCLOVIR SODIUM [Concomitant]
     Active Substance: ACYCLOVIR SODIUM
     Indication: Product used for unknown indication
     Dosage: 500 MG, TID
     Route: 042
  39. BETAMETHASONE VALERATE\FUSIDIC ACID [Concomitant]
     Active Substance: BETAMETHASONE VALERATE\FUSIDIC ACID
     Indication: Product used for unknown indication
     Dosage: UNK UNK, TID
  40. AMOXICILLIN\CLAVULANATE POTASSIUM [Concomitant]
     Active Substance: AMOXICILLIN\CLAVULANATE POTASSIUM
     Indication: Product used for unknown indication
     Dosage: 1 DF, BID
     Route: 065
  41. PEGASPARGASE [Concomitant]
     Active Substance: PEGASPARGASE
     Indication: Product used for unknown indication
     Dosage: 1540 ?L, QD QD (EV ROUTE)
     Route: 065
     Dates: start: 20161016, end: 20161016
  42. ETOPOSIDE [Concomitant]
     Active Substance: ETOPOSIDE
     Indication: Product used for unknown indication
     Dosage: 154 MG, BID
     Route: 065
     Dates: start: 20161212, end: 20161214
  43. LENOGRASTIM [Concomitant]
     Active Substance: LENOGRASTIM
     Indication: Product used for unknown indication
     Dosage: UNK
     Route: 065
  44. METHYLPREDNISOLONE [Concomitant]
     Active Substance: METHYLPREDNISOLONE
     Indication: Product used for unknown indication
     Dosage: 1540 ?L, QD
     Route: 065
     Dates: start: 20161016, end: 20161016
  45. METHYLPREDNISOLONE [Concomitant]
     Active Substance: METHYLPREDNISOLONE
     Dosage: 10 MG, QD
     Route: 037
     Dates: start: 20161214, end: 20161214
  46. AMIKACIN [Concomitant]
     Active Substance: AMIKACIN
     Indication: Product used for unknown indication
     Dosage: 1 G, UNK
     Route: 042
  47. ZANTAC [Concomitant]
     Active Substance: RANITIDINE HYDROCHLORIDE
     Indication: Product used for unknown indication
     Dosage: UNK
     Route: 065
  48. CYCLOPHOSPHAMIDE [Concomitant]
     Active Substance: CYCLOPHOSPHAMIDE
     Indication: Product used for unknown indication
     Dosage: 308 MG, QD (EV ROUTE)
     Dates: start: 20161012, end: 20161014
  49. MYCOSTATIN [Concomitant]
     Active Substance: NYSTATIN
     Indication: Product used for unknown indication
     Dosage: UNK
     Route: 065
  50. RANITIDINE [Concomitant]
     Active Substance: RANITIDINE
     Indication: Product used for unknown indication
     Dosage: 150 MG, UNK
     Route: 065
  51. CIPROFLOXACIN [Concomitant]
     Active Substance: CIPROFLOXACIN
     Indication: Product used for unknown indication
     Dosage: 500 MG, BID
     Route: 065
  52. POTASSIUM CHLORIDE [Concomitant]
     Active Substance: POTASSIUM CHLORIDE
     Indication: Product used for unknown indication
     Dosage: UNK
     Route: 042

REACTIONS (21)
  - Pneumonia [Recovered/Resolved]
  - Cough [Recovering/Resolving]
  - Pulmonary mass [Unknown]
  - Cytogenetic analysis abnormal [Not Recovered/Not Resolved]
  - Arthralgia [Not Recovered/Not Resolved]
  - Catarrh [Recovering/Resolving]
  - Bone marrow failure [Recovered/Resolved]
  - Neutropenia [Not Recovered/Not Resolved]
  - Pyrexia [Recovered/Resolved]
  - Haemoglobin decreased [Unknown]
  - Aplasia [Recovered/Resolved]
  - Anaemia [Recovering/Resolving]
  - Leukopenia [Recovering/Resolving]
  - Vomiting [Recovered/Resolved]
  - Faeces soft [Recovered/Resolved]
  - Mucous stools [Recovered/Resolved]
  - Haematochezia [Recovered/Resolved]
  - Thrombocytopenia [Unknown]
  - Hypertension [Unknown]
  - Hypotension [Unknown]
  - Asthenia [Unknown]

NARRATIVE: CASE EVENT DATE: 20161220
